FAERS Safety Report 25895715 (Version 2)
Quarter: 2025Q4

REPORT INFORMATION
  Report Type: Spontaneous
  Country: GB (occurrence: GB)
  Receive Date: 20251008
  Receipt Date: 20251010
  Transmission Date: 20260117
  Serious: Yes (Hospitalization)
  Sender: MYLAN
  Company Number: GB-MYLANLABS-2025M1085618

PATIENT
  Age: 35 Year
  Sex: Male

DRUGS (1)
  1. CLOZAPINE [Suspect]
     Active Substance: CLOZAPINE
     Indication: Schizophrenia
     Dosage: UNK, CLOZAPINE WAS RESTARTED

REACTIONS (4)
  - Treatment noncompliance [Recovering/Resolving]
  - Rebound psychosis [Recovering/Resolving]
  - Delusion [Recovering/Resolving]
  - Persecutory delusion [Recovering/Resolving]
